FAERS Safety Report 7997988 (Version 2)
Quarter: 2015Q4

REPORT INFORMATION
  Report Type: Report from Study
  Country: US (occurrence: US)
  Receive Date: 20110620
  Receipt Date: 20151203
  Transmission Date: 20160305
  Serious: Yes (Hospitalization)
  Sender: FDA-Public Use
  Company Number: US-ROCHE-782738

PATIENT
  Age: 45 Year
  Sex: Female

DRUGS (3)
  1. IXABEPILONE [Suspect]
     Active Substance: IXABEPILONE
     Indication: ENDOMETRIAL CANCER
     Route: 042
  2. BEVACIZUMAB [Suspect]
     Active Substance: BEVACIZUMAB
     Indication: ENDOMETRIAL CANCER
     Dosage: OVER 30 TO 90 MINUTES ON DAY 1 (STARTING WITH CYCLE 2 FOR THOSE PTS ENTERING POST SURGERY)
     Route: 042
  3. CARBOPLATIN. [Suspect]
     Active Substance: CARBOPLATIN
     Indication: ENDOMETRIAL CANCER
     Dosage: AUC (6 IV OVER 30 MINUTES ON DAY 1 X 6 CYCLES)
     Route: 042
     Dates: start: 20100422

REACTIONS (8)
  - Sepsis [Unknown]
  - Urinary tract infection [Unknown]
  - Anorectal infection [Unknown]
  - Skin ulcer [Unknown]
  - Anaemia [Unknown]
  - Hypoalbuminaemia [Unknown]
  - Haemoglobin decreased [Unknown]
  - Abdominal infection [Unknown]

NARRATIVE: CASE EVENT DATE: 20100624
